FAERS Safety Report 6332630-4 (Version None)
Quarter: 2009Q3

REPORT INFORMATION
  Report Type: 
  Country: None (occurrence: None)
  Receive Date: 20090828
  Receipt Date: 20090821
  Transmission Date: 20100115
  Serious: Yes (Other)
  Sender: FDA-Public Use
  Company Number: US-ASTRAZENECA-2009SE05398

PATIENT
  Age: 59 Year
  Sex: Male

DRUGS (3)
  1. SYMBICORT [Suspect]
     Indication: CHRONIC OBSTRUCTIVE PULMONARY DISEASE
     Dosage: 160/4.5 TWO PUFFS TWICE A DAY FOR OVER A YEAR
     Route: 055
  2. ALBUTEROL [Concomitant]
     Dosage: Q2H
     Route: 055
  3. FLONASE [Concomitant]
     Route: 045

REACTIONS (7)
  - CATARACT [None]
  - COUGH [None]
  - FEELING JITTERY [None]
  - HEADACHE [None]
  - PNEUMONIA [None]
  - TREMOR [None]
  - VOMITING [None]
